FAERS Safety Report 7288798-9 (Version None)
Quarter: 2011Q1

REPORT INFORMATION
  Report Type: 
  Country: None (occurrence: None)
  Receive Date: 20110211
  Receipt Date: 20110127
  Transmission Date: 20110831
  Serious: Yes (Other)
  Sender: FDA-Public Use
  Company Number: US-CELGENEUS-163-20785-10070225

PATIENT

DRUGS (2)
  1. THALOMID [Suspect]
     Indication: MULTIPLE MYELOMA
     Dosage: 50MG ESCALATED BY 50MG EACH WEEK TO 150 MG/D.
     Route: 048
  2. BORTEZOMIB [Suspect]
     Indication: MULTIPLE MYELOMA
     Route: 065

REACTIONS (12)
  - NEUROPATHY PERIPHERAL [None]
  - CONSTIPATION [None]
  - PNEUMONIA [None]
  - NEUTROPENIA [None]
  - ANAEMIA [None]
  - FATIGUE [None]
  - HERPES ZOSTER [None]
  - RASH [None]
  - DECREASED APPETITE [None]
  - DIARRHOEA [None]
  - HYPOTENSION [None]
  - MUSCLE SPASMS [None]
